FAERS Safety Report 9954565 (Version 1)
Quarter: 2014Q1

REPORT INFORMATION
  Report Type: Report from Study
  Country: US (occurrence: US)
  Receive Date: 20140304
  Receipt Date: 20140304
  Transmission Date: 20141002
  Serious: No
  Sender: FDA-Public Use
  Company Number: US-ABBVIE-13P-163-1082572-00

PATIENT
  Age: 63 Year
  Sex: Female

DRUGS (12)
  1. HUMIRA [Suspect]
     Indication: CROHN^S DISEASE
     Dates: start: 20130211
  2. IMODIUM [Concomitant]
     Indication: DIARRHOEA
  3. ESTRADIOL [Concomitant]
     Indication: HORMONE REPLACEMENT THERAPY
  4. VITAMIN D2 [Concomitant]
     Indication: VITAMIN SUPPLEMENTATION
     Dosage: WEEKLY
  5. WELLBUTRIN [Concomitant]
     Indication: STRESS
  6. PREVALITE [Concomitant]
     Indication: DIARRHOEA
     Dosage: 1 PACKET
  7. DICYCLOMINE [Concomitant]
     Indication: CROHN^S DISEASE
  8. VITAMIN B12 [Concomitant]
     Indication: MINERAL SUPPLEMENTATION
     Dosage: UNDER TONGUE 2-3 TIMES PER DAY
  9. IRON [Concomitant]
     Indication: MINERAL SUPPLEMENTATION
  10. CENTRUM [Concomitant]
     Indication: VITAMIN SUPPLEMENTATION
     Dosage: DAILY
  11. TIMOLOL [Concomitant]
     Indication: GLAUCOMA
     Dosage: EACH EYE NIGHTLY
     Route: 047
  12. MORPHINE [Concomitant]
     Indication: PRODUCT USED FOR UNKNOWN INDICATION

REACTIONS (1)
  - Injection site pain [Recovered/Resolved]
